FAERS Safety Report 9155894 (Version 1)
Quarter: 2013Q1

REPORT INFORMATION
  Report Type: Spontaneous
  Country: CN (occurrence: CN)
  Receive Date: 20130311
  Receipt Date: 20130311
  Transmission Date: 20140127
  Serious: Yes (Hospitalization, Other)
  Sender: FDA-Public Use
  Company Number: PHHY2012CN128034

PATIENT
  Age: 75 Year
  Sex: Male
  Weight: 68 kg

DRUGS (1)
  1. VOLTAREN [Suspect]
     Indication: ARTHRALGIA
     Dosage: 1 DF, QD
     Route: 048
     Dates: start: 20110201, end: 20110214

REACTIONS (13)
  - Jaundice [Recovered/Resolved]
  - Liver function test abnormal [Unknown]
  - Jaundice cholestatic [Unknown]
  - Fatigue [Unknown]
  - Pruritus [Unknown]
  - Abdominal pain upper [Recovered/Resolved]
  - Haematuria [Unknown]
  - Red blood cell count decreased [Unknown]
  - Liver injury [Unknown]
  - Oropharyngeal pain [Unknown]
  - Roseola [Unknown]
  - Chest discomfort [Unknown]
  - Rash [Unknown]
